FAERS Safety Report 6456463-3 (Version None)
Quarter: 2009Q4

REPORT INFORMATION
  Report Type: 
  Country: None (occurrence: None)
  Receive Date: 20091125
  Receipt Date: 20091119
  Transmission Date: 20100525
  Serious: Yes (Hospitalization)
  Sender: FDA-Public Use
  Company Number: BR-ABBOTT-09P-020-0609613-00

PATIENT
  Sex: Female
  Weight: 60 kg

DRUGS (1)
  1. HUMIRA [Suspect]
     Indication: CROHN'S DISEASE
     Dosage: 1 INJECTION
     Route: 058

REACTIONS (5)
  - ABDOMINAL PAIN [None]
  - ABSCESS [None]
  - CROHN'S DISEASE [None]
  - FISTULA [None]
  - PYREXIA [None]
